FAERS Safety Report 12790234 (Version 1)
Quarter: 2016Q3

REPORT INFORMATION
  Report Type: Report from Study
  Country: RO (occurrence: RO)
  Receive Date: 20160928
  Receipt Date: 20160928
  Transmission Date: 20161109
  Serious: Yes (Death, Hospitalization)
  Sender: FDA-Public Use
  Company Number: RO-ABBVIE-16P-135-1737875-00

PATIENT
  Age: 66 Year
  Sex: Male

DRUGS (1)
  1. DUODOPA [Suspect]
     Active Substance: CARBIDOPA\LEVODOPA
     Indication: PARKINSON^S DISEASE
     Dosage: 8ML/4.9ML/2.5 ML (24 H)
     Route: 050
     Dates: start: 20140418, end: 20160924

REACTIONS (6)
  - Pyrexia [Fatal]
  - Cardiopulmonary failure [Fatal]
  - Psychomotor hyperactivity [Fatal]
  - Cognitive disorder [Fatal]
  - Urinary tract infection [Fatal]
  - Urosepsis [Fatal]

NARRATIVE: CASE EVENT DATE: 20160922
